FAERS Safety Report 12980378 (Version 1)
Quarter: 2016Q4

REPORT INFORMATION
  Report Type: Spontaneous
  Country: GB (occurrence: GB)
  Receive Date: 20161128
  Receipt Date: 20161128
  Transmission Date: 20170207
  Serious: Yes (Life-Threatening, Hospitalization, Other)
  Sender: FDA-Public Use
  Company Number: GB-MYLANLABS-2016M1050115

PATIENT

DRUGS (13)
  1. ATORVASTATIN [Concomitant]
     Active Substance: ATORVASTATIN
     Dosage: UNK
  2. WARFARIN [Suspect]
     Active Substance: WARFARIN
     Indication: ATRIAL FIBRILLATION
     Dosage: UNK (AS PER INTERNATIONAL NORMALIZED RATIO.)
     Route: 048
     Dates: end: 20160706
  3. ALFACALCIDOL [Concomitant]
     Active Substance: ALFACALCIDOL
     Dosage: UNK
  4. ALFUZOSIN [Concomitant]
     Active Substance: ALFUZOSIN
     Dosage: UNK
  5. ALLOPURINOL. [Concomitant]
     Active Substance: ALLOPURINOL
     Dosage: UNK
  6. APIDRA [Concomitant]
     Active Substance: INSULIN GLULISINE
     Dosage: UNK
  7. MIRCERA [Concomitant]
     Active Substance: METHOXY POLYETHYLENE GLYCOL-EPOETIN BETA
     Dosage: UNK
  8. SODIUM BICARBONATE. [Concomitant]
     Active Substance: SODIUM BICARBONATE
     Dosage: UNK
  9. IRBESARTAN. [Suspect]
     Active Substance: IRBESARTAN
     Dosage: 300 MG, QD
     Route: 048
     Dates: end: 20160706
  10. LANTUS [Concomitant]
     Active Substance: INSULIN GLARGINE
     Dosage: UNK
  11. BISOPROLOL [Concomitant]
     Active Substance: BISOPROLOL
     Dosage: UNK
  12. NICORANDIL [Concomitant]
     Active Substance: NICORANDIL
     Dosage: UNK
  13. SERTRALINE [Concomitant]
     Active Substance: SERTRALINE HYDROCHLORIDE
     Dosage: 100 MG, QD

REACTIONS (9)
  - Acute kidney injury [Recovered/Resolved]
  - Chest pain [Unknown]
  - Left ventricular dysfunction [Unknown]
  - Melaena [Unknown]
  - Dyspnoea [Unknown]
  - International normalised ratio increased [Unknown]
  - Fatigue [Unknown]
  - Upper gastrointestinal haemorrhage [Recovered/Resolved]
  - Aortic stenosis [Unknown]

NARRATIVE: CASE EVENT DATE: 20160706
